FAERS Safety Report 6775499-6 (Version None)
Quarter: 2010Q2

REPORT INFORMATION
  Report Type: 
  Country: None (occurrence: None)
  Receive Date: 20100617
  Receipt Date: 20100610
  Transmission Date: 20101027
  Serious: Yes (Hospitalization)
  Sender: FDA-Public Use
  Company Number: FR-BRISTOL-MYERS SQUIBB COMPANY-15146574

PATIENT
  Age: 90 Year
  Sex: Male

DRUGS (15)
  1. EFFERALGAN CODEINE EFFER TABS [Suspect]
     Dosage: 1DF=1 EFFERVESCENT TABLET
     Route: 048
     Dates: end: 20100414
  2. PRAVASTATINE WINTHROP [Suspect]
     Dosage: 1DF=1 TABLET, STRENGTH: 20MG
     Route: 048
     Dates: start: 20090101, end: 20100414
  3. LANSOPRAZOLE [Suspect]
     Dosage: 1DF=1 CAPSULE;EG 30MG
     Route: 048
     Dates: start: 20100223, end: 20100414
  4. LAMALINE [Suspect]
     Dosage: 1DF=1 CAPSULE
     Route: 048
     Dates: start: 20100402
  5. ROPINIROLE HYDROCHLORIDE [Suspect]
     Dosage: 1DF=1 TABLET;STRENGTH: 0.25MG
     Dates: end: 20100414
  6. FUROSEMIDE [Suspect]
     Dosage: STRENGTH: 40MG
     Route: 048
     Dates: start: 20081101, end: 20100414
  7. MECIR [Suspect]
     Dosage: 1DF=1 TABLET;MECIR SR STRENGTH: 0.4MG
     Route: 048
     Dates: start: 20081101, end: 20100414
  8. PNEUMOREL [Suspect]
     Dosage: 1DF=1 TABLET; STRENGTH: 80MG
     Route: 048
     Dates: start: 20081101, end: 20100414
  9. CORDARONE [Concomitant]
     Dates: start: 20081101
  10. KARDEGIC [Concomitant]
     Dosage: KARDEGIC 75
     Dates: start: 20081101
  11. PREVISCAN [Concomitant]
     Dates: start: 20081101
  12. CORTANCYL [Concomitant]
     Dates: start: 20081101
  13. BECLONE [Concomitant]
  14. VENTOLIN [Concomitant]
     Dates: start: 20081101
  15. NEXIUM [Concomitant]
     Dates: start: 20081101

REACTIONS (2)
  - AGRANULOCYTOSIS [None]
  - INFECTION [None]
